FAERS Safety Report 4317262-1 (Version None)
Quarter: 2004Q1

REPORT INFORMATION
  Report Type: 
  Country: None (occurrence: None)
  Receive Date: 20040312
  Receipt Date: 20040227
  Transmission Date: 20041129
  Serious: Yes (Hospitalization)
  Sender: FDA-Public Use
  Company Number: 235656

PATIENT
  Age: 68 Year
  Sex: Male
  Weight: 86 kg

DRUGS (10)
  1. NOVONORM (REPAGLINIDE) TABLET, 0.5 MG [Suspect]
     Indication: DIABETES MELLITUS NON-INSULIN-DEPENDENT
     Dosage: PER ORAL
     Route: 048
  2. CIPROFLOXACIN [Concomitant]
  3. OMEPRAZOLE [Concomitant]
  4. FRAXIPARINE (HEPARIN-FRACTION, CALCIUM SALT) [Concomitant]
  5. LASIX [Concomitant]
  6. AMLODIPINE BESYLATE [Concomitant]
  7. MIXTARD 30 (INSULIN HUMAN) [Concomitant]
  8. GLUCOPHAG [Concomitant]
  9. CALCIPARINE [Concomitant]
  10. GLUCOR (ACARBOSE) [Concomitant]

REACTIONS (5)
  - AGRANULOCYTOSIS [None]
  - BONE MARROW MYELOGRAM ABNORMAL [None]
  - PATHOGEN RESISTANCE [None]
  - SHOCK [None]
  - STAPHYLOCOCCAL INFECTION [None]
